FAERS Safety Report 13304690 (Version 1)
Quarter: 2017Q1

REPORT INFORMATION
  Report Type: Spontaneous
  Country: US (occurrence: US)
  Receive Date: 20170308
  Receipt Date: 20170308
  Transmission Date: 20170428
  Serious: No
  Sender: FDA-Public Use
  Company Number: US-009507513-1703USA000326

PATIENT
  Sex: Male

DRUGS (5)
  1. PROVENTIL [Suspect]
     Active Substance: ALBUTEROL
     Dosage: 2 PUFFS TWICE DAILY
     Route: 055
  2. PROVENTIL [Suspect]
     Active Substance: ALBUTEROL
     Dosage: 2 PUFFS TWICE DAILY
     Route: 055
  3. PROVENTIL [Suspect]
     Active Substance: ALBUTEROL
     Dosage: 2 PUFFS TWICE DAILY
     Route: 055
  4. PROVENTIL [Suspect]
     Active Substance: ALBUTEROL
     Dosage: 2 PUFFS TWICE DAILY
     Route: 055
  5. PROVENTIL [Suspect]
     Active Substance: ALBUTEROL
     Dosage: 2 PUFFS TWICE DAILY
     Route: 055

REACTIONS (3)
  - Drug dose omission [Unknown]
  - Product quality issue [Unknown]
  - No adverse event [Unknown]
